FAERS Safety Report 20811360 (Version 2)
Quarter: 2022Q2

REPORT INFORMATION
  Report Type: Spontaneous
  Country: PE (occurrence: PE)
  Receive Date: 20220510
  Receipt Date: 20220520
  Transmission Date: 20220720
  Serious: Yes (Death, Hospitalization, Other)
  Sender: FDA-Public Use
  Company Number: PE-SA-SAC20220509001964

PATIENT
  Age: 86 Year
  Sex: Male

DRUGS (5)
  1. IRBESARTAN [Suspect]
     Active Substance: IRBESARTAN
     Indication: Hypertension
     Dosage: 1 DF, QD
     Route: 048
     Dates: start: 2010, end: 20190121
  2. HYDROCHLOROTHIAZIDE\IRBESARTAN [Concomitant]
     Active Substance: HYDROCHLOROTHIAZIDE\IRBESARTAN
     Indication: Hypertension
     Dosage: 1 DF, QD
     Route: 048
     Dates: start: 2005, end: 2010
  3. ATENOLOL [Concomitant]
     Active Substance: ATENOLOL
     Indication: Hypertension
     Dosage: UNK
     Dates: start: 20190121
  4. ATORVASTATIN [Concomitant]
     Active Substance: ATORVASTATIN
     Indication: Hypercholesterolaemia
     Dosage: UNK
     Dates: start: 20190121
  5. FINASTERIDE [Concomitant]
     Active Substance: FINASTERIDE
     Indication: Benign prostatic hyperplasia
     Dosage: UNK
     Dates: start: 20190121

REACTIONS (10)
  - Cardiac arrest [Fatal]
  - Peripheral swelling [Fatal]
  - Postoperative respiratory failure [Fatal]
  - Cardiac disorder [Fatal]
  - Hypertension [Fatal]
  - Leg amputation [Fatal]
  - Phlebitis [Fatal]
  - Mitral valve prolapse [Fatal]
  - Aneurysm [Fatal]
  - Necrosis [Fatal]

NARRATIVE: CASE EVENT DATE: 20170101
